FAERS Safety Report 25886740 (Version 1)
Quarter: 2025Q4

REPORT INFORMATION
  Report Type: Spontaneous
  Country: US (occurrence: None)
  Receive Date: 20251006
  Receipt Date: 20251006
  Transmission Date: 20260118
  Serious: Yes (Death)
  Sender: FDA-CTU
  Company Number: None

PATIENT
  Age: 75 Year
  Sex: Female

DRUGS (1)
  1. CYCLOPHOSPHAMIDE [Suspect]
     Active Substance: CYCLOPHOSPHAMIDE
     Indication: Amyloidosis
     Dosage: OTHER FREQUENCY : WEEKLY;?
     Route: 048
     Dates: start: 20250415

REACTIONS (2)
  - Pulmonary oedema [None]
  - Respiratory failure [None]

NARRATIVE: CASE EVENT DATE: 20250717
